FAERS Safety Report 18906114 (Version 2)
Quarter: 2021Q1

REPORT INFORMATION
  Report Type: Spontaneous
  Country: GB (occurrence: GB)
  Receive Date: 20210217
  Receipt Date: 20210319
  Transmission Date: 20210420
  Serious: Yes (Hospitalization)
  Sender: FDA-Public Use
  Company Number: GB-MYLANLABS-2021M1009461

PATIENT
  Age: 53 Year
  Sex: Male

DRUGS (1)
  1. CLOZARIL [Suspect]
     Active Substance: CLOZAPINE
     Indication: SCHIZOPHRENIA
     Dosage: UNK
     Route: 048
     Dates: start: 20130619, end: 20210208

REACTIONS (2)
  - Product dose omission issue [Recovered/Resolved]
  - Hospitalisation [Recovering/Resolving]

NARRATIVE: CASE EVENT DATE: 20210207
